FAERS Safety Report 17487075 (Version 1)
Quarter: 2020Q1

REPORT INFORMATION
  Report Type: Spontaneous
  Country: US (occurrence: US)
  Receive Date: 20200303
  Receipt Date: 20200303
  Transmission Date: 20200409
  Serious: No
  Sender: FDA-Public Use
  Company Number: US-BAUSCH-BL-2020-005640

PATIENT
  Age: 65 Year
  Sex: Female
  Weight: 61.29 kg

DRUGS (1)
  1. LUMIFY [Suspect]
     Active Substance: BRIMONIDINE TARTRATE
     Indication: OCULAR HYPERAEMIA
     Dosage: TAKING THE SUSPECT PRODUCT ABOUT 2 AND 1/2 WEEKS AGO.?1 DROP INTO EACH EYE
     Route: 047
     Dates: start: 2020

REACTIONS (2)
  - Lacrimation increased [Not Recovered/Not Resolved]
  - Inappropriate schedule of product administration [Unknown]

NARRATIVE: CASE EVENT DATE: 2020
